FAERS Safety Report 21087406 (Version 1)
Quarter: 2022Q3

REPORT INFORMATION
  Report Type: Report from Study
  Country: ZA (occurrence: ZA)
  Receive Date: 20220715
  Receipt Date: 20220715
  Transmission Date: 20221027
  Serious: Yes (Hospitalization)
  Sender: FDA-Public Use
  Company Number: ZA-AstraZeneca-2022A199146

PATIENT
  Age: 0 Year
  Sex: Male
  Weight: 5.7 kg

DRUGS (1)
  1. SYNAGIS [Suspect]
     Active Substance: PALIVIZUMAB
     Indication: Product used for unknown indication
     Route: 030
     Dates: start: 20220505

REACTIONS (3)
  - Rhinovirus infection [Recovering/Resolving]
  - Human bocavirus infection [Recovering/Resolving]
  - Metapneumovirus infection [Recovering/Resolving]

NARRATIVE: CASE EVENT DATE: 20220513
